FAERS Safety Report 19174970 (Version 2)
Quarter: 2021Q2

REPORT INFORMATION
  Report Type: Report from Study
  Country: ES (occurrence: ES)
  Receive Date: 20210423
  Receipt Date: 20210429
  Transmission Date: 20210717
  Serious: Yes (Death, Hospitalization)
  Sender: FDA-Public Use
  Company Number: ES-PFIZER INC-2018-04823

PATIENT
  Age: 64 Year
  Sex: Female
  Weight: 57.3 kg

DRUGS (8)
  1. DEXKETOPROFEN [Concomitant]
     Active Substance: DEXKETOPROFEN
     Indication: PELVIC PAIN
     Dosage: 25 MG, 3X/DAY (EACH 8 HOURS)
     Route: 048
     Dates: start: 20181016
  2. EMULIQUEN LAXANTE [PARAFFIN;SODIUM PICOSULFATE] [Concomitant]
     Indication: CONSTIPATION
     Dosage: 2 SPOONS, BID
     Route: 048
     Dates: start: 20181016
  3. MST [MORPHINE SULFATE] [Concomitant]
     Active Substance: MORPHINE SULFATE
     Dosage: 20 MG, 2X/DAY
     Route: 048
     Dates: start: 20181203
  4. ERYTHROMYCIN. [Concomitant]
     Active Substance: ERYTHROMYCIN
     Indication: DERMATITIS ACNEIFORM
     Dosage: 1 APPLICATION, QD
     Route: 061
     Dates: start: 20181105
  5. PARACETAMOL [Concomitant]
     Active Substance: ACETAMINOPHEN
     Indication: PELVIC PAIN
     Dosage: 1 G, 3X/DAY (EACH 8 HOURS)
     Route: 048
     Dates: start: 20181016
  6. BINIMETINIB [Suspect]
     Active Substance: BINIMETINIB
     Indication: COLORECTAL CANCER METASTATIC
     Dosage: 45 MG, Q12H
     Route: 048
     Dates: start: 20181002, end: 20181203
  7. NIVOLUMAB [Suspect]
     Active Substance: NIVOLUMAB
     Indication: COLORECTAL CANCER METASTATIC
     Dosage: 480 MG, CYCLIC (EVERY 4 WEEKS)
     Route: 042
     Dates: start: 20181002, end: 20181203
  8. MST [MORPHINE SULFATE] [Concomitant]
     Active Substance: MORPHINE SULFATE
     Indication: PAIN PROPHYLAXIS
     Dosage: 10 MG, 2X/DAY
     Route: 048
     Dates: start: 20181031, end: 20181202

REACTIONS (1)
  - Cardiac failure [Recovered/Resolved]

NARRATIVE: CASE EVENT DATE: 20181212
